FAERS Safety Report 19040137 (Version 1)
Quarter: 2021Q1

REPORT INFORMATION
  Report Type: Spontaneous
  Country: CA (occurrence: CA)
  Receive Date: 20210323
  Receipt Date: 20210323
  Transmission Date: 20210420
  Serious: Yes (Hospitalization, Other)
  Sender: FDA-Public Use
  Company Number: CA-JNJFOC-20210338024

PATIENT
  Age: 92 Year
  Sex: Female
  Weight: 48 kg

DRUGS (2)
  1. PREDNISONE. [Concomitant]
     Active Substance: PREDNISONE
     Route: 048
  2. INFLIXIMAB, RECOMBINANT [Suspect]
     Active Substance: INFLIXIMAB
     Indication: COLITIS ULCERATIVE
     Route: 042

REACTIONS (8)
  - Tremor [Unknown]
  - Vomiting [Unknown]
  - Off label use [Unknown]
  - Abdominal pain [Unknown]
  - Suspected COVID-19 [Unknown]
  - Atrial fibrillation [Unknown]
  - Urosepsis [Unknown]
  - Pyrexia [Unknown]
